FAERS Safety Report 13280365 (Version 1)
Quarter: 2017Q1

REPORT INFORMATION
  Report Type: Spontaneous
  Country: US (occurrence: US)
  Receive Date: 20170301
  Receipt Date: 20170301
  Transmission Date: 20170428
  Serious: Yes (Hospitalization)
  Sender: FDA-Public Use
  Company Number: US-ROCHE-1899054

PATIENT
  Sex: Female
  Weight: 15.44 kg

DRUGS (1)
  1. PULMOZYME [Suspect]
     Active Substance: DORNASE ALFA
     Indication: PRODUCT USED FOR UNKNOWN INDICATION
     Dosage: 1 VIAL VIA NEBULIZER
     Route: 065

REACTIONS (4)
  - Cough [Unknown]
  - Productive cough [Unknown]
  - Respiratory rate increased [Unknown]
  - Decreased appetite [Unknown]
